FAERS Safety Report 9158497 (Version 2)
Quarter: 2013Q1

REPORT INFORMATION
  Report Type: Spontaneous
  Country: AT (occurrence: AT)
  Receive Date: 20130312
  Receipt Date: 20130318
  Transmission Date: 20140127
  Serious: Yes (Other)
  Sender: FDA-Public Use
  Company Number: AT-GILEAD-2013-0071399

PATIENT
  Age: 47 Year
  Sex: Female

DRUGS (3)
  1. TRUVADA [Suspect]
     Indication: IMMUNODEFICIENCY
     Dosage: 1 DF, QD
     Route: 048
     Dates: start: 20090814
  2. ACETYL CYSTEINE SENJU [Concomitant]
     Indication: CEREBROVASCULAR DISORDER
     Dosage: UNK
     Route: 048
     Dates: start: 20090506
  3. ISENTRESS [Concomitant]
     Indication: IMMUNODEFICIENCY
     Dosage: 600 MG, BID
     Route: 048
     Dates: start: 20100510

REACTIONS (2)
  - Osteonecrosis [Recovered/Resolved]
  - Bone marrow oedema [Recovered/Resolved]
